FAERS Safety Report 7751428-3 (Version None)
Quarter: 2011Q3

REPORT INFORMATION
  Report Type: 
  Country: None (occurrence: None)
  Receive Date: 20110914
  Receipt Date: 20110907
  Transmission Date: 20111222
  Serious: Yes (Death)
  Sender: FDA-Public Use
  Company Number: IR-GENENTECH-324065

PATIENT
  Age: 30 Year
  Sex: Female

DRUGS (1)
  1. MABTHERA [Suspect]
     Indication: PEMPHIGUS
     Dosage: 500 MG, UNK
     Route: 042
     Dates: start: 20100801, end: 20100901

REACTIONS (1)
  - DYSPNOEA [None]
